FAERS Safety Report 26121784 (Version 1)
Quarter: 2025Q4

REPORT INFORMATION
  Report Type: Spontaneous
  Country: US (occurrence: None)
  Receive Date: 20251203
  Receipt Date: 20251203
  Transmission Date: 20260117
  Serious: Yes (Death)
  Sender: FDA-CTU
  Company Number: None

PATIENT
  Age: 32 Year
  Sex: Female
  Weight: 61.69 kg

DRUGS (1)
  1. ZURZUVAE [Suspect]
     Active Substance: ZURANOLONE
     Indication: Perinatal depression
     Dosage: FREQUENCY : DAILY;
     Route: 048
     Dates: start: 20251121

REACTIONS (1)
  - Completed suicide [None]

NARRATIVE: CASE EVENT DATE: 20251124
